FAERS Safety Report 20214276 (Version 2)
Quarter: 2022Q1

REPORT INFORMATION
  Report Type: Spontaneous
  Country: NO (occurrence: NO)
  Receive Date: 20211221
  Receipt Date: 20220110
  Transmission Date: 20220423
  Serious: Yes (Other)
  Sender: FDA-Public Use
  Company Number: NO-SA-SAC20211218000020

PATIENT
  Sex: Female

DRUGS (8)
  1. CLOBAZAM [Suspect]
     Active Substance: CLOBAZAM
     Indication: Cognitive disorder
     Dosage: CYCLE 1 :40 MG(NOS) FOR 5 WEEKS
     Route: 065
  2. CLOBAZAM [Suspect]
     Active Substance: CLOBAZAM
     Indication: Epilepsy
     Dosage: CYCLE 2 :40 MG (NOS)(10 MG + 10 MG + 20 MG) FOR 3 WEEKS,
     Route: 065
  3. CLOBAZAM [Suspect]
     Active Substance: CLOBAZAM
     Dosage: CYCLE 3 :40 MG(NOS)(10 MG + 10 MG + 20 MG) FOR 5 WEEKS
     Route: 065
  4. CLOBAZAM [Suspect]
     Active Substance: CLOBAZAM
     Dosage: CYCLE 4 :40 MG(NOS) FOR 5 WEEKS
     Route: 065
  5. RIVOTRIL [Concomitant]
     Active Substance: CLONAZEPAM
     Indication: Epilepsy
     Dosage: CYCLE 1 : 4 MG (NOS) FOR 3 WEEKS
     Route: 065
  6. RIVOTRIL [Concomitant]
     Active Substance: CLONAZEPAM
     Indication: Cognitive disorder
     Dosage: CYCLE 2 : 4 MG (NOS) FOR 3 WEEKS
     Route: 065
  7. RIVOTRIL [Concomitant]
     Active Substance: CLONAZEPAM
     Dosage: CYCLE 3 : 4 MG (NOS) FOR 3 WEEKS
     Route: 065
  8. RIVOTRIL [Concomitant]
     Active Substance: CLONAZEPAM
     Dosage: CYCLE 4 : 4 MG (NOS) FOR 3 WEEKS
     Route: 065

REACTIONS (5)
  - Temporal lobe epilepsy [Unknown]
  - Epilepsy [Unknown]
  - Cognitive disorder [Unknown]
  - Off label use [Unknown]
  - Drug ineffective [Unknown]

NARRATIVE: CASE EVENT DATE: 20130101
